FAERS Safety Report 9526462 (Version 1)
Quarter: 2013Q3

REPORT INFORMATION
  Report Type: Spontaneous
  Country: US (occurrence: US)
  Receive Date: 20130916
  Receipt Date: 20130916
  Transmission Date: 20140515
  Serious: Yes (Other)
  Sender: FDA-Public Use
  Company Number: US-MYLANLABS-2013S1019918

PATIENT
  Age: 2 Month
  Sex: Male

DRUGS (4)
  1. ENALAPRIL [Suspect]
     Indication: PROTEINURIA
     Dosage: INITIAL DOSE OF 0.05 MG/KG
     Route: 048
  2. ENALAPRIL [Suspect]
     Indication: PROTEINURIA
     Dosage: 2 DOSES
     Route: 042
  3. CHLOROTHIAZIDE [Suspect]
     Route: 065
  4. FUROSEMIDE [Suspect]
     Route: 065

REACTIONS (2)
  - Hypotension [Unknown]
  - Renal failure acute [Recovering/Resolving]
